FAERS Safety Report 5287451-0 (Version None)
Quarter: 2007Q1

REPORT INFORMATION
  Report Type: 
  Country: None (occurrence: None)
  Receive Date: 20070116
  Receipt Date: 20060920
  Transmission Date: 20070707
  Serious: No
  Sender: FDA-Public Use
  Company Number: 2006SP003367

PATIENT
  Age: 67 Year
  Sex: Female
  Weight: 74.3899 kg

DRUGS (4)
  1. LUNESTA [Suspect]
     Indication: POOR QUALITY SLEEP
     Dosage: 2 MG HS ORAL
     Route: 048
     Dates: start: 20060919
  2. VYTORIN [Concomitant]
  3. VITAMINS [Concomitant]
  4. AMBIEN [Concomitant]

REACTIONS (2)
  - DRUG INEFFECTIVE [None]
  - INITIAL INSOMNIA [None]
